FAERS Safety Report 8392293-3 (Version None)
Quarter: 2012Q2

REPORT INFORMATION
  Report Type: 
  Country: None (occurrence: None)
  Receive Date: 20120529
  Receipt Date: 20120522
  Transmission Date: 20120825
  Serious: Yes (Other)
  Sender: FDA-Public Use
  Company Number: JP-ABBOTT-12P-087-0934404-00

PATIENT

DRUGS (1)
  1. SEVOFLURANE [Suspect]
     Indication: MATERNAL EXPOSURE TIMING UNSPECIFIED
     Route: 064

REACTIONS (5)
  - TRACHEOSTOMY [None]
  - HEART RATE DECREASED [None]
  - FOETAL EXPOSURE DURING PREGNANCY [None]
  - CAESAREAN SECTION [None]
  - ENDOTRACHEAL INTUBATION COMPLICATION [None]
